FAERS Safety Report 7634381-2 (Version None)
Quarter: 2011Q3

REPORT INFORMATION
  Report Type: 
  Country: None (occurrence: None)
  Receive Date: 20110725
  Receipt Date: 20110721
  Transmission Date: 20111222
  Serious: Yes (Other)
  Sender: FDA-Public Use
  Company Number: US-ABBOTT-11P-163-0723553-00

PATIENT
  Age: 34 Year
  Sex: Female

DRUGS (9)
  1. NORVIR [Suspect]
     Indication: ANTIRETROVIRAL THERAPY
     Route: 048
     Dates: start: 20071001, end: 20101118
  2. TRUVADA [Suspect]
     Indication: ANTIRETROVIRAL THERAPY
     Route: 048
     Dates: start: 20071001
  3. PRENATAL MULTIVITAMINS WITH FOLIC ACID [Suspect]
     Indication: PRODUCT USED FOR UNKNOWN INDICATION
     Dates: start: 20101110
  4. CITRACAL + D [Suspect]
     Indication: PRODUCT USED FOR UNKNOWN INDICATION
     Route: 048
     Dates: start: 20100430
  5. FAMOTIDINE [Suspect]
     Indication: PRODUCT USED FOR UNKNOWN INDICATION
     Route: 048
     Dates: start: 20110324
  6. ZOFRAN [Suspect]
     Indication: PRODUCT USED FOR UNKNOWN INDICATION
     Route: 048
     Dates: start: 20101118
  7. KALETRA [Suspect]
     Indication: ANTIRETROVIRAL THERAPY
     Route: 048
     Dates: start: 20101118, end: 20110210
  8. KALETRA [Suspect]
     Route: 048
     Dates: start: 20110210
  9. REYATAZ [Suspect]
     Indication: ANTIRETROVIRAL THERAPY
     Route: 048
     Dates: start: 20071001, end: 20101118

REACTIONS (9)
  - NAUSEA [None]
  - MATERNAL EXPOSURE DURING PREGNANCY [None]
  - HAEMATOCRIT DECREASED [None]
  - STILLBIRTH [None]
  - DIARRHOEA [None]
  - HAEMOGLOBIN DECREASED [None]
  - DYSPEPSIA [None]
  - WHITE BLOOD CELL COUNT INCREASED [None]
  - AMNIORRHOEA [None]
